FAERS Safety Report 9871964 (Version 1)
Quarter: 2014Q1

REPORT INFORMATION
  Report Type: Spontaneous
  Country: US (occurrence: US)
  Receive Date: 20140205
  Receipt Date: 20140205
  Transmission Date: 20141002
  Serious: No
  Sender: FDA-Public Use
  Company Number: US-ALLERGAN-1304973US

PATIENT
  Sex: Female

DRUGS (4)
  1. BOTOX [Suspect]
     Indication: PRODUCT USED FOR UNKNOWN INDICATION
     Dosage: UNK UNK, SINGLE
     Dates: start: 201303, end: 201303
  2. JUVEDERM ULTRA PLUS XC [Suspect]
     Indication: PRODUCT USED FOR UNKNOWN INDICATION
     Dosage: UNK
     Dates: start: 20121116, end: 20121116
  3. RESTYLANE [Concomitant]
  4. PERLANE [Concomitant]

REACTIONS (4)
  - Swelling face [Unknown]
  - Swelling face [Unknown]
  - Nasal discomfort [Unknown]
  - Granuloma [Unknown]
